FAERS Safety Report 23971040 (Version 1)
Quarter: 2024Q2

REPORT INFORMATION
  Report Type: Spontaneous
  Country: US (occurrence: US)
  Receive Date: 20240613
  Receipt Date: 20240613
  Transmission Date: 20240716
  Serious: Yes (Other)
  Sender: FDA-Public Use
  Company Number: US-SUN PHARMACEUTICAL INDUSTRIES LTD-2024R1-449361

PATIENT
  Age: 58 Year
  Sex: Female

DRUGS (3)
  1. HYDROXYCHLOROQUINE [Suspect]
     Active Substance: HYDROXYCHLOROQUINE
     Indication: Granuloma annulare
     Dosage: 200 MILLIGRAM, BID
     Route: 048
  2. CLOBETASOL [Concomitant]
     Active Substance: CLOBETASOL
     Indication: Skin lesion
     Route: 061
  3. PREDNISONE [Concomitant]
     Active Substance: PREDNISONE
     Indication: Skin lesion
     Route: 048

REACTIONS (1)
  - Thrombocytopenic purpura [Recovered/Resolved]
